FAERS Safety Report 4939031-1 (Version None)
Quarter: 2006Q1

REPORT INFORMATION
  Report Type: 
  Country: None (occurrence: None)
  Receive Date: 20060309
  Receipt Date: 20060227
  Transmission Date: 20060701
  Serious: Yes (Other)
  Sender: FDA-Public Use
  Company Number: US-MERCK-0602USA05940

PATIENT
  Age: 32 Year
  Sex: Female
  Weight: 107 kg

DRUGS (1)
  1. VIOXX [Suspect]
     Indication: ABDOMINAL PAIN
     Route: 048
     Dates: start: 20030701, end: 20030801

REACTIONS (4)
  - CHEST PAIN [None]
  - LARGE INTESTINAL HAEMORRHAGE [None]
  - OOPHORECTOMY [None]
  - ULCER [None]
